FAERS Safety Report 8455052-9 (Version None)
Quarter: 2012Q2

REPORT INFORMATION
  Report Type: 
  Country: None (occurrence: None)
  Receive Date: 20120613
  Receipt Date: 20120605
  Transmission Date: 20120825
  Serious: Yes (Hospitalization, Other)
  Sender: FDA-Public Use
  Company Number: 2012SP030530

PATIENT
  Age: 49 Year
  Sex: Male
  Weight: 79.3795 kg

DRUGS (3)
  1. RIBAVIRIN [Suspect]
     Indication: HEPATITIS C
     Dosage: 1000 MG;QD;
  2. PEG-INTRON [Suspect]
     Dosage: 120 MCG;QW;SC
     Route: 058
     Dates: start: 20110914, end: 20120302
  3. INCIVEK [Suspect]
     Indication: HEPATITIS C
     Dosage: 750 MG, TID
     Dates: start: 20110904, end: 20120302

REACTIONS (7)
  - FLUID RETENTION [None]
  - HALLUCINATION [None]
  - ABDOMINAL DISTENSION [None]
  - FEELING ABNORMAL [None]
  - ENCEPHALOPATHY [None]
  - CONSTIPATION [None]
  - ANAEMIA [None]
